FAERS Safety Report 5586911-2 (Version None)
Quarter: 2008Q1

REPORT INFORMATION
  Report Type: 
  Country: None (occurrence: None)
  Receive Date: 20080108
  Receipt Date: 20080108
  Transmission Date: 20080703
  Serious: Yes (Other)
  Sender: FDA-Public Use
  Company Number: None

PATIENT
  Age: 33 Year
  Sex: Female
  Weight: 49.8957 kg

DRUGS (1)
  1. CHANTIX [Suspect]
     Indication: SMOKING CESSATION THERAPY
     Dosage: 1MG TWO TIMES A DAY
     Dates: start: 20071027, end: 20071130

REACTIONS (11)
  - ABNORMAL BEHAVIOUR [None]
  - ABNORMAL DREAMS [None]
  - ANXIETY [None]
  - CRYING [None]
  - EMOTIONAL DISORDER [None]
  - INSOMNIA [None]
  - NAUSEA [None]
  - NIGHTMARE [None]
  - PSYCHOTIC BEHAVIOUR [None]
  - SUICIDAL IDEATION [None]
  - VOMITING [None]
